FAERS Safety Report 14540433 (Version 2)
Quarter: 2018Q2

REPORT INFORMATION
  Report Type: Spontaneous
  Country: US (occurrence: US)
  Receive Date: 20180216
  Receipt Date: 20180517
  Transmission Date: 20180711
  Serious: No
  Sender: FDA-Public Use
  Company Number: US-SYNERGY PHARMACEUTICALS INC-US-2017SNG000298

PATIENT

DRUGS (1)
  1. TRULANCE [Suspect]
     Active Substance: PLECANATIDE
     Indication: CONSTIPATION
     Dosage: 3 MG, QD
     Route: 048
     Dates: start: 20171206

REACTIONS (4)
  - Muscle spasms [Recovering/Resolving]
  - Gastrointestinal sounds abnormal [Recovering/Resolving]
  - Nausea [Recovering/Resolving]
  - Abnormal faeces [Recovering/Resolving]

NARRATIVE: CASE EVENT DATE: 20171206
